FAERS Safety Report 4357915-2 (Version None)
Quarter: 2004Q2

REPORT INFORMATION
  Report Type: 
  Country: None (occurrence: None)
  Receive Date: 20040513
  Receipt Date: 20040513
  Transmission Date: 20050107
  Serious: Yes (Other)
  Sender: FDA-Public Use
  Company Number: None

PATIENT
  Age: 52 Year
  Sex: Male
  Weight: 74.8435 kg

DRUGS (3)
  1. CEFEPIME [Suspect]
     Indication: SEPSIS
     Dosage: 2 GR
  2. CEFEPIME [Suspect]
     Indication: URINARY TRACT INFECTION
     Dosage: 2 GR
  3. LEVAQUIN [Concomitant]

REACTIONS (1)
  - NEUTROPENIA [None]
